FAERS Safety Report 8610465-7 (Version None)
Quarter: 2012Q3

REPORT INFORMATION
  Report Type: 
  Country: None (occurrence: None)
  Receive Date: 20120822
  Receipt Date: 20120817
  Transmission Date: 20120928
  Serious: Yes (Other)
  Sender: FDA-Public Use
  Company Number: US-PFIZER INC-2012161393

PATIENT
  Age: 53 Year
  Sex: Female

DRUGS (17)
  1. BUSPIRONE HYDROCHLORIDE [Concomitant]
     Dosage: 15 MG, 2X/DAY
     Route: 048
  2. ZOCOR [Concomitant]
     Dosage: 20 MG, 1X/DAY IN EVENING
     Route: 048
  3. OMEPRAZOLE [Concomitant]
     Dosage: 20 MG, DAILY
     Route: 048
  4. BUSPIRONE HYDROCHLORIDE [Concomitant]
     Dosage: UNK
  5. SULINDAC [Concomitant]
     Dosage: 200 MG, 2X/DAY
     Route: 048
  6. SYMBICORT [Concomitant]
     Dosage: 2 DF (PUFFS), 2X/DAY
     Route: 055
  7. HYDROCODONE BITARTRATE + ACETAMINOPHEN [Concomitant]
     Indication: PAIN
     Dosage: 1 TABLET, EVERY 6 HOURS AS NEEDED
     Route: 048
  8. METHOCARBAMOL [Concomitant]
     Dosage: 1000 MG, 3X/DAY
     Route: 048
  9. LACTOBACILLUS BIFIDUS, LYOPHILIZED [Concomitant]
     Dosage: UNK, AS DIRECTED
     Route: 048
  10. DIOVAN HCT [Concomitant]
     Dosage: 1 TABLET, 1X/DAY
     Route: 048
  11. OXYBUTYNIN CHLORIDE [Concomitant]
     Dosage: 5 MG, 3X/DAY AS NEEDED
     Route: 048
  12. LORATADINE [Concomitant]
     Dosage: 10 MG, DAILY
     Route: 048
  13. VENTOLIN [Concomitant]
     Dosage: 2 PUFFS, EVERY 4 HRS AS NEEDED
     Route: 055
  14. CYMBALTA [Concomitant]
     Dosage: 60 MG, 1X/DAY
     Route: 048
  15. CHANTIX [Suspect]
     Indication: TOBACCO ABUSE
     Dosage: STARTER PACK
     Route: 048
  16. NEURONTIN [Suspect]
     Dosage: 1200 MG, 3X/DAY
     Route: 048
  17. ACCOLATE [Concomitant]
     Dosage: 20 MG, 2X/DAY ON EMPTY STOMACH
     Route: 048

REACTIONS (3)
  - SUICIDAL IDEATION [None]
  - DEPRESSION [None]
  - DRUG HYPERSENSITIVITY [None]
